FAERS Safety Report 7285813-3 (Version None)
Quarter: 2011Q1

REPORT INFORMATION
  Report Type: 
  Country: None (occurrence: None)
  Receive Date: 20110210
  Receipt Date: 20110202
  Transmission Date: 20110831
  Serious: No
  Sender: FDA-Public Use
  Company Number: FR-ACTELION-A-CH2010-40756

PATIENT
  Sex: Female

DRUGS (1)
  1. ZAVESCA [Suspect]
     Indication: GAUCHER'S DISEASE
     Dosage: 100 MG, TID
     Route: 048
     Dates: start: 20090910, end: 20100127

REACTIONS (3)
  - UPPER RESPIRATORY TRACT INFECTION [None]
  - COUGH [None]
  - DIARRHOEA [None]
